FAERS Safety Report 24431026 (Version 2)
Quarter: 2024Q4

REPORT INFORMATION
  Report Type: Spontaneous
  Country: IN (occurrence: IN)
  Receive Date: 20241014
  Receipt Date: 20241127
  Transmission Date: 20250114
  Serious: Yes (Death, Hospitalization, Other)
  Sender: ALEMBIC
  Company Number: IN-ALEMBIC PHARMACUETICALS LIMITED-2024SCAL001480

PATIENT

DRUGS (4)
  1. ITRACONAZOLE [Suspect]
     Active Substance: ITRACONAZOLE
     Indication: Dermatophytosis
     Dosage: UNK
     Route: 065
  2. ITRACONAZOLE [Suspect]
     Active Substance: ITRACONAZOLE
     Indication: Body tinea
  3. TERBINAFINE [Suspect]
     Active Substance: TERBINAFINE\TERBINAFINE HYDROCHLORIDE
     Indication: Actinomycotic skin infection
     Dosage: UNK
     Route: 065
  4. TERBINAFINE [Suspect]
     Active Substance: TERBINAFINE\TERBINAFINE HYDROCHLORIDE
     Indication: Body tinea

REACTIONS (48)
  - Multiple organ dysfunction syndrome [Fatal]
  - Hyperkalaemia [Fatal]
  - Disseminated intravascular coagulation [Fatal]
  - Cardiac arrest [Fatal]
  - Acute kidney injury [Fatal]
  - Respiratory failure [Fatal]
  - Pulmonary alveolar haemorrhage [Fatal]
  - Haemophagocytic lymphohistiocytosis [Fatal]
  - Hypocomplementaemia [Fatal]
  - Myocarditis [Fatal]
  - Hepatic steatosis [Fatal]
  - Cutaneous vasculitis [Fatal]
  - Rash maculo-papular [Fatal]
  - Blister [Fatal]
  - Tachycardia [Fatal]
  - Rash [Fatal]
  - Jaundice [Fatal]
  - Abdominal pain upper [Fatal]
  - Macule [Fatal]
  - Periorbital oedema [Fatal]
  - Pyrexia [Fatal]
  - Skin necrosis [Fatal]
  - Skin plaque [Fatal]
  - Scab [Fatal]
  - Mucosal erosion [Fatal]
  - Leukocytosis [Fatal]
  - Hepatocellular injury [Fatal]
  - Alanine aminotransferase increased [Fatal]
  - Blood alkaline phosphatase increased [Fatal]
  - Gamma-glutamyltransferase increased [Fatal]
  - Hyperbilirubinaemia [Fatal]
  - International normalised ratio increased [Fatal]
  - Anuria [Fatal]
  - Hepatomegaly [Fatal]
  - Blood lactate dehydrogenase increased [Fatal]
  - Blood triglycerides increased [Fatal]
  - Serum ferritin increased [Fatal]
  - Blood fibrinogen decreased [Fatal]
  - Sinus tachycardia [Fatal]
  - Troponin I increased [Fatal]
  - Blood creatine phosphokinase MB increased [Fatal]
  - Tachypnoea [Fatal]
  - Platelet count decreased [Fatal]
  - Eosinophil count increased [Fatal]
  - Blood urea increased [Fatal]
  - Blood creatinine increased [Fatal]
  - Blood urine present [Fatal]
  - Rash erythematous [Fatal]
